FAERS Safety Report 5725439-3 (Version None)
Quarter: 2008Q2

REPORT INFORMATION
  Report Type: 
  Country: None (occurrence: None)
  Receive Date: 20080501
  Receipt Date: 20080424
  Transmission Date: 20081010
  Serious: Yes (Other)
  Sender: FDA-Public Use
  Company Number: US-ASTRAZENECA-2008UW08413

PATIENT
  Age: 55 Year
  Sex: Female
  Weight: 74.8 kg

DRUGS (13)
  1. ARIMIDEX [Suspect]
     Indication: BREAST CANCER
     Route: 048
     Dates: start: 20070101
  2. SYNTHROID [Concomitant]
  3. LORATADINE [Concomitant]
  4. PULMICORT [Concomitant]
  5. GLUCOSAMINE [Concomitant]
  6. VITAMIN D [Concomitant]
  7. SELENIUM [Concomitant]
  8. SINGULAIR [Concomitant]
  9. NASACORT [Concomitant]
  10. ASTELIN [Concomitant]
  11. CALCIUM [Concomitant]
  12. VIT B12 [Concomitant]
  13. FOSOMAX [Concomitant]

REACTIONS (13)
  - ARTHRALGIA [None]
  - BACK PAIN [None]
  - BREAST PAIN [None]
  - DISTURBANCE IN ATTENTION [None]
  - HOT FLUSH [None]
  - INCREASED APPETITE [None]
  - INFECTION [None]
  - JOINT STIFFNESS [None]
  - LUNG DISORDER [None]
  - OSTEOPENIA [None]
  - OSTEOPOROSIS [None]
  - SINUSITIS [None]
  - WEIGHT INCREASED [None]
